FAERS Safety Report 21555990 (Version 1)
Quarter: 2022Q4

REPORT INFORMATION
  Report Type: Report from Study
  Country: US (occurrence: US)
  Receive Date: 20221104
  Receipt Date: 20221104
  Transmission Date: 20230113
  Serious: Yes (Other)
  Sender: FDA-Public Use
  Company Number: US-ABBVIE-4187110

PATIENT
  Age: 57 Year
  Sex: Female

DRUGS (1)
  1. IMBRUVICA [Suspect]
     Active Substance: IBRUTINIB
     Indication: Chronic lymphocytic leukaemia
     Route: 048
     Dates: start: 20220107

REACTIONS (9)
  - Eye operation [Recovering/Resolving]
  - Facial pain [Unknown]
  - Ocular hyperaemia [Recovering/Resolving]
  - Erythema [Unknown]
  - Eye swelling [Unknown]
  - Swelling face [Unknown]
  - Eye pain [Unknown]
  - Blindness unilateral [Unknown]
  - Pharyngitis streptococcal [Recovered/Resolved]

NARRATIVE: CASE EVENT DATE: 20221017
